FAERS Safety Report 20558361 (Version 1)
Quarter: 2022Q1

REPORT INFORMATION
  Report Type: Spontaneous
  Country: IN (occurrence: IN)
  Receive Date: 20220307
  Receipt Date: 20220307
  Transmission Date: 20220423
  Serious: Yes (Death, Life-Threatening, Hospitalization)
  Sender: FDA-Public Use
  Company Number: IN-STRIDES ARCOLAB LIMITED-2022SP001907

PATIENT
  Age: 15 Year
  Sex: Male

DRUGS (1)
  1. DEXAMETHASONE [Suspect]
     Active Substance: DEXAMETHASONE
     Indication: Acute lymphocytic leukaemia
     Dosage: 20 MILLIGRAM/SQ. METER, PER DAY
     Route: 065

REACTIONS (14)
  - Cardiac arrest [Fatal]
  - Bacillus infection [Fatal]
  - Sepsis [Fatal]
  - Encephalopathy [Unknown]
  - Metabolic acidosis [Unknown]
  - Acute hepatic failure [Unknown]
  - Multiple organ dysfunction syndrome [Unknown]
  - Disseminated intravascular coagulation [Unknown]
  - Hyperphosphataemia [Unknown]
  - Catheter site haemorrhage [Unknown]
  - Endotracheal intubation complication [Unknown]
  - Haemorrhage [Unknown]
  - Hyperammonaemia [Unknown]
  - Shock [Unknown]
